FAERS Safety Report 4269492-5 (Version None)
Quarter: 2004Q1

REPORT INFORMATION
  Report Type: 
  Country: None (occurrence: None)
  Receive Date: 20040112
  Receipt Date: 20031231
  Transmission Date: 20041129
  Serious: No
  Sender: FDA-Public Use
  Company Number: 2004UW00009

PATIENT
  Age: 58 Year
  Sex: Female

DRUGS (6)
  1. PULMICORT [Suspect]
     Dosage: 2 PUFF BID IH
     Route: 055
     Dates: start: 20031111, end: 20031118
  2. TAMOFEN [Concomitant]
  3. EFFEXOR [Concomitant]
  4. UNIDET [Concomitant]
  5. FOSAMAX [Concomitant]
  6. CHEMOTHERAPY [Concomitant]

REACTIONS (3)
  - DIARRHOEA [None]
  - FAECAL INCONTINENCE [None]
  - HAEMATOCHEZIA [None]
